FAERS Safety Report 17146122 (Version 1)
Quarter: 2019Q4

REPORT INFORMATION
  Report Type: Spontaneous
  Country: IT (occurrence: IT)
  Receive Date: 20191212
  Receipt Date: 20191212
  Transmission Date: 20200122
  Serious: Yes (Other)
  Sender: FDA-Public Use
  Company Number: IT-TEVA-2019-IT-1150499

PATIENT
  Age: 21 Year
  Sex: Female

DRUGS (1)
  1. COPAXONE [Suspect]
     Active Substance: GLATIRAMER ACETATE
     Dates: start: 201701

REACTIONS (6)
  - Drug ineffective [Unknown]
  - Multiple sclerosis relapse [Unknown]
  - Injection site urticaria [Unknown]
  - Multiple sclerosis [Unknown]
  - Fatigue [Unknown]
  - Paraesthesia [Unknown]
